FAERS Safety Report 9708805 (Version 2)
Quarter: 2014Q1

REPORT INFORMATION
  Report Type: Spontaneous
  Country: TH (occurrence: None)
  Receive Date: 20131122
  Receipt Date: 20140220
  Transmission Date: 20141002
  Serious: Yes (Hospitalization)
  Sender: FDA-Public Use
  Company Number: SYM-2013-12895

PATIENT
  Age: 27 Year
  Sex: Male

DRUGS (10)
  1. FLUOROURACIL [Suspect]
     Indication: COLORECTAL CANCER METASTATIC
     Route: 040
     Dates: start: 20131028, end: 20131028
  2. AFLIBERCEPT (AFLIBERCEPT) (SOLUTION FOR INFUSION) (AFLIBERCEPT) [Suspect]
     Indication: COLORECTAL CANCER METASTATIC
     Dates: start: 20131028, end: 20131028
  3. IRINOTECAN (IRINOTECAN) (SOLUTION FOR INFUSION) (IRINOTECAN) [Suspect]
     Indication: COLORECTAL CANCER METASTATIC
     Dates: start: 20131028, end: 20131028
  4. LEUCOVORIN (FOLINIC ACID) (SOLUTION FOR INFUSION) (FOLINIC ACID) [Suspect]
     Indication: COLORECTAL CANCER METASTATIC
     Dates: start: 20131028, end: 20131028
  5. SERONTONIN ANTAGONISTS (SEROTONIN ANTAGONISTS) [Concomitant]
  6. CORTICOSTEROIDS (CORTICOSTEROIDS) [Concomitant]
  7. ANTICHOLINERGICS (ANTICHOLINERGICS) [Concomitant]
  8. METOCLOPRAMIDE (METOCLOPRAMIDE) (METOCLOPRAMIDE) [Concomitant]
  9. LORAZEPAM (LORAZEPAM) (LORAZEPAM) [Concomitant]
  10. BACLOFEN (BACLOFEN) (BACLOFEN) [Concomitant]

REACTIONS (5)
  - Febrile neutropenia [None]
  - Dyspnoea [None]
  - Sepsis [None]
  - Respiratory failure [None]
  - Disseminated intravascular coagulation [None]
